FAERS Safety Report 8235015-9 (Version None)
Quarter: 2012Q1

REPORT INFORMATION
  Report Type: 
  Country: None (occurrence: None)
  Receive Date: 20120326
  Receipt Date: 20120320
  Transmission Date: 20120608
  Serious: Yes (Hospitalization)
  Sender: FDA-Public Use
  Company Number: US-GLAXOSMITHKLINE-A0913506A

PATIENT
  Age: 64 Year
  Sex: Female
  Weight: 121.4 kg

DRUGS (1)
  1. AVANDIA [Suspect]
     Indication: DIABETES MELLITUS
     Dosage: 4MG PER DAY
     Route: 048
     Dates: start: 20020910, end: 20060101

REACTIONS (2)
  - CARDIOVASCULAR DISORDER [None]
  - CARDIAC DISORDER [None]
